FAERS Safety Report 14232358 (Version 2)
Quarter: 2017Q4

REPORT INFORMATION
  Report Type: Report from Study
  Country: US (occurrence: US)
  Receive Date: 20171128
  Receipt Date: 20171206
  Transmission Date: 20180321
  Serious: No
  Sender: FDA-Public Use
  Company Number: PHEH2017US037631

PATIENT
  Age: 15 Year
  Sex: Male

DRUGS (2)
  1. OMNITROPE [Suspect]
     Active Substance: SOMATROPIN
     Indication: GROWTH RETARDATION
     Dosage: 2.5 MG, QD
     Route: 058
     Dates: start: 20170815
  2. OMNITROPE [Suspect]
     Active Substance: SOMATROPIN
     Dosage: 0.5 MG, QD
     Route: 058
     Dates: start: 20171128, end: 20171201

REACTIONS (1)
  - Injection site mass [Recovered/Resolved]

NARRATIVE: CASE EVENT DATE: 20171016
